FAERS Safety Report 19873105 (Version 1)
Quarter: 2021Q3

REPORT INFORMATION
  Report Type: Spontaneous
  Country: US (occurrence: US)
  Receive Date: 20210922
  Receipt Date: 20210922
  Transmission Date: 20211014
  Serious: No
  Sender: FDA-Public Use
  Company Number: None

PATIENT
  Age: 59 Year
  Sex: Male

DRUGS (1)
  1. COSENTYX [Suspect]
     Active Substance: SECUKINUMAB
     Indication: PSORIASIS
     Dosage: FREQUENCY: EVERY WEEK FOR WEEKS 2 AND 3 AS DIRECTED
     Route: 058
     Dates: start: 202106

REACTIONS (1)
  - Acute myocardial infarction [None]
